FAERS Safety Report 10369124 (Version 2)
Quarter: 2014Q3

REPORT INFORMATION
  Report Type: Spontaneous
  Country: IT (occurrence: IT)
  Receive Date: 20140807
  Receipt Date: 20140918
  Transmission Date: 20150326
  Serious: Yes (Hospitalization)
  Sender: FDA-Public Use
  Company Number: IT-JNJFOC-20140803933

PATIENT
  Age: 12 Year
  Sex: Male
  Weight: 42.9 kg

DRUGS (4)
  1. REMICADE [Suspect]
     Active Substance: INFLIXIMAB
     Indication: CROHN^S DISEASE
     Route: 042
     Dates: start: 20140710, end: 20140710
  2. METHOTREXATE [Concomitant]
     Active Substance: METHOTREXATE
     Indication: CROHN^S DISEASE
     Route: 048
     Dates: start: 201405
  3. TRIMETON [Concomitant]
     Active Substance: CHLORPHENIRAMINE MALEATE
     Indication: PREMEDICATION
     Route: 065
  4. HYDROCORTISONE. [Concomitant]
     Active Substance: HYDROCORTISONE
     Indication: PREMEDICATION
     Route: 065

REACTIONS (5)
  - Oxygen saturation decreased [Recovered/Resolved]
  - Infusion related reaction [Recovered/Resolved]
  - Generalised erythema [Recovered/Resolved]
  - Hypersensitivity [Recovered/Resolved]
  - Vomiting [Recovered/Resolved]

NARRATIVE: CASE EVENT DATE: 20140710
